FAERS Safety Report 9689200 (Version 2)
Quarter: 2013Q4

REPORT INFORMATION
  Report Type: Spontaneous
  Country: JP (occurrence: JP)
  Receive Date: 20131114
  Receipt Date: 20131114
  Transmission Date: 20140711
  Serious: Yes (Other)
  Sender: FDA-Public Use
  Company Number: JP-GE HEALTHCARE MEDICAL DIAGNOSTICS-OMPQ-PR-1310S-1225

PATIENT
  Age: 67 Year
  Sex: Male

DRUGS (27)
  1. OMNIPAQUE [Suspect]
     Indication: PRODUCT USED FOR UNKNOWN INDICATION
     Route: 013
     Dates: start: 20130911, end: 20130911
  2. OMNIPAQUE [Suspect]
     Indication: DIAGNOSTIC PROCEDURE
  3. HEPARIN [Concomitant]
     Route: 065
  4. CILOSTAZOL [Concomitant]
     Route: 065
  5. UNISIA HD [Concomitant]
     Route: 065
     Dates: start: 20130914
  6. ACTOS [Concomitant]
     Route: 065
     Dates: start: 20130914
  7. BAYASPIRIN [Concomitant]
     Route: 065
     Dates: start: 20130914
  8. BAYASPIRIN [Concomitant]
     Route: 065
     Dates: start: 20130914
  9. GASTER D [Concomitant]
     Route: 065
     Dates: start: 20130914
  10. GASTER D [Concomitant]
     Route: 065
     Dates: start: 20130914
  11. EVIPROSTAT DB [Concomitant]
     Route: 065
     Dates: start: 20130914
  12. EVIPROSTAT DB [Concomitant]
     Route: 065
     Dates: start: 20130914
  13. BASEN OD [Concomitant]
     Route: 065
     Dates: start: 20130914
  14. BASEN OD [Concomitant]
     Route: 065
     Dates: start: 20130914
  15. GLUFAST [Concomitant]
     Route: 065
     Dates: start: 20130914
  16. PURSENNID [Concomitant]
     Route: 065
     Dates: start: 20130914
  17. ROHYPNOL [Concomitant]
     Route: 065
     Dates: start: 20130914
  18. PROMAC [Concomitant]
     Route: 065
     Dates: start: 20130914
  19. METGLUCO [Concomitant]
     Route: 065
     Dates: start: 20130914
  20. FOLIAMIN [Concomitant]
     Route: 065
     Dates: start: 20130914
  21. FERRUM [Concomitant]
     Route: 065
     Dates: start: 20130914
  22. VEEN-F [Concomitant]
     Route: 042
     Dates: start: 20130914
  23. HISICEOL [Concomitant]
     Route: 042
     Dates: start: 20130914
  24. SODIUM CHLORIDE [Concomitant]
     Route: 042
     Dates: start: 20130914
  25. NESP [Concomitant]
     Route: 042
     Dates: start: 20130914
  26. FESIN [Concomitant]
     Route: 042
     Dates: start: 20130914
  27. RISPERDAL [Concomitant]
     Route: 048

REACTIONS (2)
  - Renal failure acute [Recovered/Resolved]
  - Somnolence [Unknown]
